FAERS Safety Report 5993652-6 (Version None)
Quarter: 2008Q4

REPORT INFORMATION
  Report Type: 
  Country: None (occurrence: None)
  Receive Date: 20081212
  Receipt Date: 20081202
  Transmission Date: 20090506
  Serious: Yes (Death, Life-Threatening, Hospitalization)
  Sender: FDA-Public Use
  Company Number: FR-AMGEN-US295054

PATIENT
  Sex: Female
  Weight: 80 kg

DRUGS (8)
  1. ENBREL [Suspect]
     Indication: RHEUMATOID ARTHRITIS
     Route: 058
     Dates: start: 19980323, end: 20080201
  2. METHOTREXATE [Suspect]
     Indication: RHEUMATOID ARTHRITIS
     Dosage: 12.5 MG TOTAL WEEKLY
     Route: 048
     Dates: start: 20030801, end: 20080201
  3. CORTANCYL [Concomitant]
     Indication: RHEUMATOID ARTHRITIS
     Dosage: 10 MG TOTAL DAILY
     Route: 048
     Dates: start: 19950201
  4. PREVISCAN [Concomitant]
     Dosage: UNKNOWN
     Route: 048
  5. DETENSIEL [Concomitant]
     Indication: HYPERTENSION
     Route: 048
  6. INIPOMP [Concomitant]
     Indication: PROPHYLAXIS AGAINST GASTROINTESTINAL ULCER
     Route: 048
  7. INIPOMP [Concomitant]
     Indication: GASTROOESOPHAGEAL REFLUX PROPHYLAXIS
  8. SPECIAFOLDINE [Concomitant]
     Indication: RHEUMATOID ARTHRITIS
     Dosage: 10 MG TOTAL WEEKLY
     Route: 048
     Dates: start: 19960201, end: 20080201

REACTIONS (19)
  - BACTERIAL DISEASE CARRIER [None]
  - BONE MARROW GRANULOMA [None]
  - BONE MARROW NECROSIS [None]
  - BONE TUBERCULOSIS [None]
  - CARDIAC ARREST [None]
  - CHOLECYSTITIS [None]
  - CHOLESTASIS [None]
  - DISSEMINATED INTRAVASCULAR COAGULATION [None]
  - HISTIOCYTOSIS HAEMATOPHAGIC [None]
  - HODGKIN'S DISEASE STAGE I [None]
  - IMPAIRED HEALING [None]
  - LACTIC ACIDOSIS [None]
  - MULTI-ORGAN FAILURE [None]
  - PLEURISY [None]
  - POST PROCEDURAL COMPLICATION [None]
  - RESPIRATORY DISTRESS [None]
  - SEPTIC SHOCK [None]
  - SJOGREN'S SYNDROME [None]
  - WALDENSTROM'S MACROGLOBULINAEMIA [None]
